FAERS Safety Report 5425923-6 (Version None)
Quarter: 2007Q3

REPORT INFORMATION
  Report Type: 
  Country: None (occurrence: None)
  Receive Date: 20070827
  Receipt Date: 20070822
  Transmission Date: 20080115
  Serious: Yes (Hospitalization, Other)
  Sender: FDA-Public Use
  Company Number: US-BRISTOL-MYERS SQUIBB COMPANY-13886080

PATIENT
  Age: 51 Year
  Sex: Male
  Weight: 116 kg

DRUGS (2)
  1. CISPLATIN [Suspect]
     Indication: SQUAMOUS CELL CARCINOMA
     Dosage: LAST DOSE :09-AUG-2007
     Dates: start: 20070719, end: 20070719
  2. RADIATION THERAPY [Suspect]
     Indication: SQUAMOUS CELL CARCINOMA
     Dosage: 4600 CGY LAST DOSE : 14-AUG-2007
     Dates: start: 20070719, end: 20070719

REACTIONS (6)
  - DEHYDRATION [None]
  - HAEMORRHOIDS [None]
  - HYPERNATRAEMIA [None]
  - ORAL PAIN [None]
  - STOMATITIS [None]
  - WEIGHT DECREASED [None]
